FAERS Safety Report 4516056-1 (Version None)
Quarter: 2004Q4

REPORT INFORMATION
  Report Type: 
  Country: None (occurrence: None)
  Receive Date: 20041129
  Receipt Date: 20041116
  Transmission Date: 20050328
  Serious: Yes (Other)
  Sender: FDA-Public Use
  Company Number: 2004095783

PATIENT
  Sex: Male

DRUGS (1)
  1. CELEBREX [Suspect]
     Indication: ADENOMATOUS POLYPOSIS COLI
     Dosage: 800 MG (400 MG, BID), ORAL
     Route: 048
     Dates: start: 20040101, end: 20041001

REACTIONS (2)
  - ANOREXIA [None]
  - COMA [None]
